FAERS Safety Report 5721803-7 (Version None)
Quarter: 2008Q2

REPORT INFORMATION
  Report Type: 
  Country: None (occurrence: None)
  Receive Date: 20080429
  Receipt Date: 20070830
  Transmission Date: 20081010
  Serious: No
  Sender: FDA-Public Use
  Company Number: US-ASTRAZENECA-2007UW07214

PATIENT
  Age: 68 Year
  Sex: Female
  Weight: 56.7 kg

DRUGS (7)
  1. NEXIUM [Suspect]
     Indication: DYSPEPSIA
     Route: 048
  2. NEXIUM [Suspect]
     Indication: PAIN
     Route: 048
  3. HORMONES [Concomitant]
  4. ANTIHISTAMINES [Concomitant]
  5. VITAMINS [Concomitant]
  6. PREVACID [Concomitant]
  7. XANAX [Concomitant]

REACTIONS (3)
  - DRUG INEFFECTIVE [None]
  - DRY SKIN [None]
  - PRURITUS [None]
